FAERS Safety Report 25403870 (Version 1)
Quarter: 2025Q2

REPORT INFORMATION
  Report Type: Spontaneous
  Country: IT (occurrence: IT)
  Receive Date: 20250606
  Receipt Date: 20250606
  Transmission Date: 20250716
  Serious: Yes (Other)
  Sender: CELLTRION
  Company Number: None

PATIENT

DRUGS (1)
  1. VEGZELMA [Suspect]
     Active Substance: BEVACIZUMAB-ADCD
     Indication: Product used for unknown indication
     Dosage: 1.25 MG/KG, EVERY 1 MONTH
     Route: 031
     Dates: start: 20240704, end: 20241004

REACTIONS (3)
  - Neovascular age-related macular degeneration [Unknown]
  - Drug ineffective [Recovered/Resolved]
  - Intentional product use issue [Unknown]

NARRATIVE: CASE EVENT DATE: 20240704
